FAERS Safety Report 5292202-X (Version None)
Quarter: 2007Q2

REPORT INFORMATION
  Report Type: 
  Country: None (occurrence: None)
  Receive Date: 20070410
  Receipt Date: 20070409
  Transmission Date: 20071010
  Serious: Yes (Death, Hospitalization)
  Sender: FDA-Public Use
  Company Number: AT-ROCHE-217111

PATIENT
  Age: 54 Year
  Sex: Male
  Weight: 92 kg

DRUGS (2)
  1. ISOTRETINOIN [Suspect]
     Indication: MALIGNANT MELANOMA
     Route: 048
     Dates: start: 19981221, end: 20000624
  2. ROFERON-A [Suspect]
     Indication: MALIGNANT MELANOMA
     Route: 058
     Dates: start: 19981221, end: 20000624

REACTIONS (2)
  - FACIAL PARESIS [None]
  - MALIGNANT MELANOMA [None]
